FAERS Safety Report 6127840-5 (Version None)
Quarter: 2009Q1

REPORT INFORMATION
  Report Type: 
  Country: None (occurrence: None)
  Receive Date: 20090320
  Receipt Date: 20090320
  Transmission Date: 20090719
  Serious: Yes (Other)
  Sender: FDA-Public Use
  Company Number: None

PATIENT
  Sex: Female
  Weight: 78.0187 kg

DRUGS (2)
  1. LEFLUNOMIDE [Suspect]
  2. PREVALITE [Concomitant]

REACTIONS (13)
  - ARTHRALGIA [None]
  - BONE PAIN [None]
  - DYSGEUSIA [None]
  - EYELID DISORDER [None]
  - JOINT SWELLING [None]
  - LIP SWELLING [None]
  - MASS [None]
  - NASAL DISCOMFORT [None]
  - NASAL DISORDER [None]
  - SKIN DISORDER [None]
  - SWELLING [None]
  - VISION BLURRED [None]
  - WEIGHT DECREASED [None]
